FAERS Safety Report 10182908 (Version 1)
Quarter: 2014Q2

REPORT INFORMATION
  Report Type: Spontaneous
  Country: US (occurrence: US)
  Receive Date: 20140520
  Receipt Date: 20140520
  Transmission Date: 20141212
  Serious: No
  Sender: FDA-Public Use
  Company Number: US-009507513-1405USA006473

PATIENT
  Age: 13 Year
  Sex: Male

DRUGS (1)
  1. SOLARCAINE BURN RELIEF ALOE EXTRA SPRAY [Suspect]
     Indication: PRODUCT USED FOR UNKNOWN INDICATION
     Dosage: UNK UNK, UNKNOWN
     Route: 061
     Dates: start: 20140504

REACTIONS (8)
  - Chemical burn of skin [Unknown]
  - Pain [Not Recovered/Not Resolved]
  - Swelling [Unknown]
  - Muscle tightness [Unknown]
  - Muscle rigidity [Unknown]
  - Insomnia [Not Recovered/Not Resolved]
  - Skin disorder [Unknown]
  - Unevaluable event [Unknown]
